FAERS Safety Report 10708992 (Version 3)
Quarter: 2017Q2

REPORT INFORMATION
  Report Type: Spontaneous
  Country: CA (occurrence: CA)
  Receive Date: 20150114
  Receipt Date: 20170608
  Transmission Date: 20170829
  Serious: Yes (Other)
  Sender: FDA-Public Use
  Company Number: CA-ROCHE-1520441

PATIENT
  Sex: Male

DRUGS (6)
  1. ALVESCO [Concomitant]
     Active Substance: CICLESONIDE
  2. NASONEX [Concomitant]
     Active Substance: MOMETASONE FUROATE
  3. ZENHALE [Concomitant]
     Active Substance: FORMOTEROL FUMARATE\MOMETASONE FUROATE
  4. XOLAIR [Suspect]
     Active Substance: OMALIZUMAB
     Indication: ASTHMA
     Route: 058
     Dates: start: 20131001
  5. VENTOLIN [Concomitant]
     Active Substance: ALBUTEROL SULFATE
  6. ATARAX [Concomitant]
     Active Substance: HYDROXYZINE HYDROCHLORIDE

REACTIONS (4)
  - Seasonal allergy [Recovering/Resolving]
  - Pneumonia [Unknown]
  - Asthma [Recovering/Resolving]
  - Eczema [Recovered/Resolved]
